FAERS Safety Report 23770058 (Version 1)
Quarter: 2024Q2

REPORT INFORMATION
  Report Type: Spontaneous
  Country: SK (occurrence: SK)
  Receive Date: 20240422
  Receipt Date: 20240422
  Transmission Date: 20240716
  Serious: Yes (Other)
  Sender: FDA-Public Use
  Company Number: SK-002147023-NVSC2024SK079338

PATIENT

DRUGS (3)
  1. RUXOLITINIB [Suspect]
     Active Substance: RUXOLITINIB
     Indication: Splenomegaly
     Dosage: 20 MG (TWICE) (2X20MG)
     Route: 065
     Dates: start: 20160226, end: 20160428
  2. RUXOLITINIB [Suspect]
     Active Substance: RUXOLITINIB
     Dosage: 15 MG (TWICE) (2X15 MG)
     Route: 065
     Dates: start: 20160428
  3. THROMBOREDUCTIN [Concomitant]
     Indication: Product used for unknown indication
     Dosage: UNK
     Route: 065
     Dates: start: 20160226, end: 20160329

REACTIONS (13)
  - Abdominal distension [Unknown]
  - Bone pain [Unknown]
  - Myalgia [Unknown]
  - Fatigue [Unknown]
  - Abdominal discomfort [Unknown]
  - Headache [Unknown]
  - Dyspepsia [Unknown]
  - Pruritus [Unknown]
  - Memory impairment [Unknown]
  - Anaemia [Recovering/Resolving]
  - Night sweats [Unknown]
  - Visual impairment [Unknown]
  - Asthenia [Unknown]

NARRATIVE: CASE EVENT DATE: 20160101
